FAERS Safety Report 13050321 (Version 2)
Quarter: 2016Q4

REPORT INFORMATION
  Report Type: Spontaneous
  Country: US (occurrence: US)
  Receive Date: 20161221
  Receipt Date: 20161223
  Transmission Date: 20170207
  Serious: Yes (Hospitalization, Other)
  Sender: FDA-Public Use
  Company Number: US-GLAXOSMITHKLINE-US2016GSK188990

PATIENT
  Age: 19 Year
  Sex: Male

DRUGS (1)
  1. BUPROPION. [Suspect]
     Active Substance: BUPROPION

REACTIONS (9)
  - Serotonin syndrome [Unknown]
  - Hyperreflexia [Unknown]
  - Priapism [Unknown]
  - Intentional overdose [Unknown]
  - Condition aggravated [Unknown]
  - Nystagmus [Unknown]
  - Clonus [Unknown]
  - Generalised tonic-clonic seizure [Unknown]
  - Confusional state [Unknown]
